FAERS Safety Report 9362994 (Version 2)
Quarter: 2013Q2

REPORT INFORMATION
  Report Type: Spontaneous
  Country: GB (occurrence: None)
  Receive Date: 20130619
  Receipt Date: 20130620
  Transmission Date: 20140414
  Serious: Yes (Death, Other)
  Sender: FDA-Public Use
  Company Number: AUR-APL-2013-04911

PATIENT
  Age: 67 Year
  Sex: Female

DRUGS (6)
  1. SERTRALINE [Suspect]
     Indication: NOSOCOMIAL INFECTION
     Route: 048
     Dates: start: 20090901, end: 20090906
  2. ERYTHROMYCIN [Suspect]
     Indication: NOSOCOMIAL INFECTION
     Route: 048
     Dates: start: 20090901, end: 20090906
  3. AUGMENTIN [Suspect]
     Indication: NOSOCOMIAL INFECTION
     Route: 048
     Dates: start: 20090901, end: 20090906
  4. DEXAMETHASONE [Suspect]
     Indication: NOSOCOMIAL INFECTION
     Route: 048
     Dates: start: 20090901, end: 20090906
  5. CLARITHROMYCIN [Suspect]
     Indication: NOSOCOMIAL INFECTION
     Route: 048
     Dates: start: 20090901, end: 20090906
  6. OXYCODONE [Suspect]
     Indication: NOSOCOMIAL INFECTION
     Route: 048
     Dates: start: 20090901, end: 20090906

REACTIONS (2)
  - Dyspnoea [None]
  - Respiratory disorder [None]
